FAERS Safety Report 8614758-9 (Version None)
Quarter: 2012Q3

REPORT INFORMATION
  Report Type: 
  Country: None (occurrence: None)
  Receive Date: 20120823
  Receipt Date: 20120820
  Transmission Date: 20120928
  Serious: Yes (Death, Hospitalization)
  Sender: FDA-Public Use
  Company Number: FR-PFIZER INC-2012202830

PATIENT
  Age: 52 Year
  Sex: Female

DRUGS (3)
  1. FLUOROURACIL [Suspect]
     Indication: BREAST CANCER
     Dosage: 6 COURSES AT 500 MG/M2 M2 (CUMULATIVE DOSE : 3000 MG/M2)
     Route: 042
     Dates: start: 19910101, end: 19910101
  2. NOVANTRONE [Suspect]
     Indication: BREAST CANCER
     Dosage: 6 COURSES
     Route: 042
     Dates: start: 19910101, end: 19910101
  3. CYCLOPHOSPHAMIDE [Suspect]
     Indication: BREAST CANCER
     Dosage: 6 COURSES AT 500 MG/M2 (CUMULATIVE DOSE : 3000 MG/M2)
     Route: 042
     Dates: start: 19910101, end: 19910101

REACTIONS (2)
  - ACUTE MYELOID LEUKAEMIA [None]
  - NEOPLASM MALIGNANT [None]
